FAERS Safety Report 13535688 (Version 4)
Quarter: 2018Q1

REPORT INFORMATION
  Report Type: Report from Study
  Country: US (occurrence: US)
  Receive Date: 20170511
  Receipt Date: 20180205
  Transmission Date: 20180508
  Serious: Yes (Hospitalization)
  Sender: FDA-Public Use
  Company Number: US-JNJFOC-20170403238

PATIENT
  Age: 84 Year
  Sex: Female

DRUGS (28)
  1. POTASSIUM [Concomitant]
     Active Substance: POTASSIUM
  2. LYRICA [Concomitant]
     Active Substance: PREGABALIN
  3. IMBRUVICA [Suspect]
     Active Substance: IBRUTINIB
     Indication: CHRONIC LYMPHOCYTIC LEUKAEMIA
     Route: 048
     Dates: start: 20170324, end: 20170427
  4. COLACE [Concomitant]
     Active Substance: DOCUSATE SODIUM
  5. VITAMIN D [Concomitant]
     Active Substance: CHOLECALCIFEROL
  6. IMBRUVICA [Suspect]
     Active Substance: IBRUTINIB
     Indication: CHRONIC LYMPHOCYTIC LEUKAEMIA
     Route: 048
     Dates: start: 20170429
  7. DIPHENHYDRAMINE. [Concomitant]
     Active Substance: DIPHENHYDRAMINE
  8. GABAPENTIN. [Concomitant]
     Active Substance: GABAPENTIN
  9. LORATADINE. [Concomitant]
     Active Substance: LORATADINE
  10. LOVENOX [Concomitant]
     Active Substance: ENOXAPARIN SODIUM
  11. PYRIDOXINE [Concomitant]
     Active Substance: PYRIDOXINE
  12. TYLENOL [Concomitant]
     Active Substance: ACETAMINOPHEN
  13. VITAMIN B [Concomitant]
     Active Substance: VITAMIN B
  14. ASPIRIN. [Concomitant]
     Active Substance: ASPIRIN
  15. CALCIUM CARBONATE. [Concomitant]
     Active Substance: CALCIUM CARBONATE
  16. PRILOSEC [Concomitant]
     Active Substance: OMEPRAZOLE MAGNESIUM
  17. SENNA [Concomitant]
     Active Substance: SENNA LEAF\SENNOSIDES\SENNOSIDES A AND B
  18. ATORVASTATIN [Concomitant]
     Active Substance: ATORVASTATIN
  19. HYDROCHLOROTH [Concomitant]
     Active Substance: HYDROCHLOROTHIAZIDE
  20. MELATONIN [Concomitant]
     Active Substance: MELATONIN
  21. NORVASC [Concomitant]
     Active Substance: AMLODIPINE BESYLATE
  22. TOPROL XL [Concomitant]
     Active Substance: METOPROLOL SUCCINATE
  23. CILOSTAZOL. [Concomitant]
     Active Substance: CILOSTAZOL
  24. IMBRUVICA [Suspect]
     Active Substance: IBRUTINIB
     Indication: CHRONIC LYMPHOCYTIC LEUKAEMIA
     Route: 048
     Dates: start: 20170325
  25. IMBRUVICA [Suspect]
     Active Substance: IBRUTINIB
     Indication: CHRONIC LYMPHOCYTIC LEUKAEMIA
     Route: 048
  26. VITAMIN B12 [Concomitant]
     Active Substance: CYANOCOBALAMIN
  27. WARFARIN [Concomitant]
     Active Substance: WARFARIN
  28. VITAMIN B6 [Concomitant]
     Active Substance: PYRIDOXINE HYDROCHLORIDE

REACTIONS (9)
  - Cellulitis [Not Recovered/Not Resolved]
  - Pain [Not Recovered/Not Resolved]
  - Arthralgia [Not Recovered/Not Resolved]
  - Urinary tract infection [Unknown]
  - Blood blister [Not Recovered/Not Resolved]
  - Dysgeusia [Recovered/Resolved]
  - Hypersensitivity [Unknown]
  - Vein disorder [Unknown]
  - Pain in extremity [Not Recovered/Not Resolved]

NARRATIVE: CASE EVENT DATE: 2017
